FAERS Safety Report 23940107 (Version 1)
Quarter: 2024Q2

REPORT INFORMATION
  Report Type: Report from Study
  Country: US (occurrence: US)
  Receive Date: 20240605
  Receipt Date: 20240605
  Transmission Date: 20240715
  Serious: Yes (Other)
  Sender: FDA-Public Use
  Company Number: US-ABBVIE-5784142

PATIENT
  Age: 77 Year

DRUGS (1)
  1. IMBRUVICA [Suspect]
     Active Substance: IBRUTINIB
     Indication: Chronic lymphocytic leukaemia
     Route: 048
     Dates: start: 20220622

REACTIONS (3)
  - Neoplasm malignant [Recovered/Resolved]
  - Urinary tract infection [Recovering/Resolving]
  - Oedematous kidney [Not Recovered/Not Resolved]

NARRATIVE: CASE EVENT DATE: 20231101
